FAERS Safety Report 20938783 (Version 1)
Quarter: 2022Q2

REPORT INFORMATION
  Report Type: Spontaneous
  Country: US (occurrence: US)
  Receive Date: 20220609
  Receipt Date: 20220609
  Transmission Date: 20220720
  Serious: Yes (Hospitalization)
  Sender: FDA-Public Use
  Company Number: US-Covis Pharma Europe B.V.-2022COV01708

PATIENT
  Age: 79 Year
  Sex: Female

DRUGS (1)
  1. OMNARIS [Suspect]
     Active Substance: CICLESONIDE
     Indication: Seasonal allergy
     Route: 045

REACTIONS (5)
  - Pulmonary oedema [Recovered/Resolved]
  - Blepharospasm [Unknown]
  - Dry eye [Unknown]
  - Eye irritation [Unknown]
  - Product administered at inappropriate site [Unknown]

NARRATIVE: CASE EVENT DATE: 20220401
